FAERS Safety Report 4320682-2 (Version None)
Quarter: 2004Q1

REPORT INFORMATION
  Report Type: 
  Country: None (occurrence: None)
  Receive Date: 20040318
  Receipt Date: 20031208
  Transmission Date: 20041129
  Serious: Yes (Hospitalization)
  Sender: FDA-Public Use
  Company Number: WAES 0312AUS00032

PATIENT
  Age: 71 Year
  Sex: Female

DRUGS (9)
  1. TAB EZETIMIBE 10 MG [Suspect]
     Indication: HYPERLIPIDAEMIA
     Dosage: 10 MG/DAILY/PO
     Route: 048
     Dates: start: 20030526, end: 20031121
  2. TAB EZETIMIBE 10 MG [Suspect]
     Indication: HYPERLIPIDAEMIA
     Dosage: 10 MG/DAILY/PO
     Route: 048
     Dates: start: 20031209
  3. FENOFIBRATE 160 MG [Suspect]
     Indication: HYPERLIPIDAEMIA
     Dosage: 160 MG/DAILY/PO
     Route: 048
     Dates: start: 20030526, end: 20031121
  4. FENOFIBRATE 160 MG [Suspect]
     Indication: HYPERLIPIDAEMIA
     Dosage: 160 MG/DAILY/PO
     Route: 048
     Dates: start: 20031209
  5. ASPIRIN [Concomitant]
  6. CELECOXIB [Concomitant]
  7. CITALOPRAM HYDROBROMIDE [Concomitant]
  8. ESTRADIOL [Concomitant]
  9. OXAZEPAM [Concomitant]

REACTIONS (10)
  - BREAST PAIN [None]
  - CHOLECYSTITIS ACUTE [None]
  - CHOLELITHIASIS [None]
  - COLLAPSE OF LUNG [None]
  - HEPATIC STEATOSIS [None]
  - LUNG CONSOLIDATION [None]
  - LUNG DISORDER [None]
  - PAIN [None]
  - PLEURAL EFFUSION [None]
  - PULMONARY THROMBOSIS [None]
